FAERS Safety Report 23609370 (Version 1)
Quarter: 2024Q1

REPORT INFORMATION
  Report Type: Spontaneous
  Country: GB (occurrence: GB)
  Receive Date: 20240308
  Receipt Date: 20240308
  Transmission Date: 20240410
  Serious: Yes (Other)
  Sender: FDA-Public Use
  Company Number: GB-AstraZeneca-2022A190973

PATIENT
  Sex: Female

DRUGS (91)
  1. APIXABAN [Suspect]
     Active Substance: APIXABAN
     Indication: Cerebrovascular accident prophylaxis
     Dosage: 10 MILLIGRAM, QD, DURATION:1 DAYS
     Route: 065
     Dates: start: 20230207, end: 20230207
  2. IMDUR [Suspect]
     Active Substance: ISOSORBIDE MONONITRATE
     Dosage: DOSAGE TEXT: UNK
     Route: 065
  3. LINAGLIPTIN [Suspect]
     Active Substance: LINAGLIPTIN
     Dosage: DOSAGE TEXT: 5 MILLIGRAM, QD
     Route: 065
  4. INSULIN GLARGINE [Concomitant]
     Active Substance: INSULIN GLARGINE
     Dosage: DOSAGE TEXT: UNK  , DURATION : 451 DAYS
     Dates: start: 20211013, end: 20230106
  5. ALBUTEROL SULFATE [Concomitant]
     Active Substance: ALBUTEROL SULFATE
     Dosage: DOSAGE TEXT: UNK
     Route: 065
     Dates: start: 20220818
  6. AMITRIPTYLINE HYDROCHLORIDE [Concomitant]
     Active Substance: AMITRIPTYLINE HYDROCHLORIDE
     Dosage: DOSAGE TEXT: UNK, THERAPY END DATE: NOT ASKED
     Route: 065
     Dates: start: 20221123
  7. AMLODIPINE [Concomitant]
     Active Substance: AMLODIPINE BESYLATE
     Dosage: DOSAGE TEXT: UNK
     Route: 065
  8. ASPIRIN [Concomitant]
     Active Substance: ASPIRIN
     Dosage: DOSAGE TEXT: UNK, THERAPY END DATE: NOT ASKED
     Route: 065
     Dates: start: 20230126
  9. ATORVASTATIN [Concomitant]
     Active Substance: ATORVASTATIN
     Dosage: DOSAGE TEXT: UNK
     Route: 065
  10. BENDROFLUMETHIAZIDE [Concomitant]
     Active Substance: BENDROFLUMETHIAZIDE
     Dosage: DOSAGE TEXT: UNK, THERAPY END DATE: NOT ASKED
     Route: 065
     Dates: start: 20221123
  11. BENDROFLUMETHIAZIDE [Concomitant]
     Active Substance: BENDROFLUMETHIAZIDE
     Dosage: DOSAGE TEXT: UNK
     Dates: start: 20221111
  12. BISOPROLOL [Concomitant]
     Active Substance: BISOPROLOL\BISOPROLOL FUMARATE
     Dosage: DOSAGE TEXT: UNK, THERAPY END DATE: NOT ASKED
     Route: 065
     Dates: start: 20230301
  13. BISOPROLOL [Concomitant]
     Active Substance: BISOPROLOL\BISOPROLOL FUMARATE
     Dosage: DOSAGE TEXT: UNK, THERAPY END DATE: NOT ASKED
     Route: 065
     Dates: start: 20221205
  14. BUMETANIDE [Concomitant]
     Active Substance: BUMETANIDE
     Dosage: DOSAGE TEXT: UNK  , DURATION : 269 DAYS
     Route: 065
     Dates: start: 20220525, end: 20230217
  15. CHLORAMPHENICOL [Concomitant]
     Active Substance: CHLORAMPHENICOL
     Dosage: DOSAGE TEXT: UNK, THERAPY END DATE: NOT ASKED
     Route: 065
     Dates: start: 20230318
  16. CITALOPRAM [Concomitant]
     Active Substance: CITALOPRAM HYDROBROMIDE
     Dosage: DOSAGE TEXT: UNK, THERAPY END DATE: NOT ASKED
     Route: 065
     Dates: start: 20230318
  17. COMIRNATY (TOZINAMERAN) [Concomitant]
     Active Substance: TOZINAMERAN
     Dosage: DOSAGE TEXT: UNK
     Route: 065
  18. DOCUSATE SODIUM [Concomitant]
     Active Substance: DOCUSATE SODIUM
     Dosage: DOSAGE TEXT: UNK
     Route: 065
  19. DOXAZOSIN [Concomitant]
     Active Substance: DOXAZOSIN MESYLATE
     Dosage: DOSAGE TEXT: UNK
     Route: 065
  20. EDOXABAN [Concomitant]
     Active Substance: EDOXABAN
     Dosage: DOSAGE TEXT: UNK, THERAPY END DATE: NOT ASKED
     Route: 065
     Dates: start: 20221205
  21. FEXOFENADINE [Concomitant]
     Active Substance: FEXOFENADINE HYDROCHLORIDE
     Dosage: DOSAGE TEXT: UNK, THERAPY END DATE: NOT ASKED
     Route: 065
     Dates: start: 20230317
  22. FLUTICASONE PROPIONATE [Concomitant]
     Active Substance: FLUTICASONE PROPIONATE
     Dosage: DOSAGE TEXT: UNK
     Route: 065
  23. FOSFOMYCIN [Concomitant]
     Active Substance: FOSFOMYCIN
     Dosage: DOSAGE TEXT: UNK  , DURATION : 2 DAYS
     Route: 065
     Dates: start: 20230227, end: 20230228
  24. GABAPENTIN [Concomitant]
     Active Substance: GABAPENTIN
     Dosage: DOSAGE TEXT: UNK
     Route: 065
  25. GAVISCON [Concomitant]
     Active Substance: ALUMINUM HYDROXIDE\MAGNESIUM CARBONATE
     Dosage: DOSAGE TEXT: UNK
     Route: 065
  26. GLICLAZIDE [Concomitant]
     Active Substance: GLICLAZIDE
     Dosage: DOSAGE TEXT: UNK
     Route: 065
  27. NITROGLYCERIN [Concomitant]
     Active Substance: NITROGLYCERIN
     Dosage: DOSAGE TEXT: UNK
     Route: 065
  28. LACTULOSE [Concomitant]
     Active Substance: LACTULOSE
     Dosage: DOSAGE TEXT: UNK
     Route: 065
  29. LACTULOSE [Concomitant]
     Active Substance: LACTULOSE
     Dosage: DOSAGE TEXT: UNK, THERAPY END DATE: NOT ASKED
     Route: 065
     Dates: start: 20221104
  30. LOSARTAN [Concomitant]
     Active Substance: LOSARTAN
     Dosage: DOSAGE TEXT: UNK
     Route: 065
  31. METFORMIN [Concomitant]
     Active Substance: METFORMIN HYDROCHLORIDE
     Dosage: DOSAGE TEXT: UNK
     Route: 065
  32. METFORMIN [Concomitant]
     Active Substance: METFORMIN HYDROCHLORIDE
     Dosage: DOSAGE TEXT: UNK
     Route: 065
  33. MOVELAT [Concomitant]
     Dosage: DOSAGE TEXT: UNK
     Route: 065
  34. OLANZAPINE [Concomitant]
     Active Substance: OLANZAPINE
     Dosage: DOSAGE TEXT: UNK
     Route: 065
  35. OMEPRAZOLE [Concomitant]
     Active Substance: OMEPRAZOLE
     Dosage: DOSAGE TEXT: UNK, THERAPY END DATE: NOT ASKED
     Route: 065
     Dates: start: 20221205
  36. OMEPRAZOLE [Concomitant]
     Active Substance: OMEPRAZOLE
     Dosage: DOSAGE TEXT: UNK, THERAPY END DATE: NOT ASKED
     Route: 065
     Dates: start: 20221123
  37. ACETAMINOPHEN [Concomitant]
     Active Substance: ACETAMINOPHEN
     Dosage: DOSAGE TEXT: UNK , DURATION: 13 DAYS
     Route: 065
     Dates: start: 20230111, end: 20230123
  38. PREDNISOLONE [Concomitant]
     Active Substance: PREDNISOLONE
     Dosage: DOSAGE TEXT: UNK
     Route: 065
  39. ASTRAZENECA COVID-19 VACCINE [Suspect]
     Active Substance: AZD-1222
     Indication: COVID-19 immunisation
     Dosage: DOSAGE TEXT: UNK
     Route: 065
     Dates: start: 20210622, end: 20210622
  40. ASTRAZENECA COVID-19 VACCINE [Suspect]
     Active Substance: AZD-1222
     Indication: COVID-19 immunisation
     Dosage: DOSAGE TEXT: UNK
     Route: 030
     Dates: start: 20210601, end: 20220512
  41. ASTRAZENECA COVID-19 VACCINE [Suspect]
     Active Substance: AZD-1222
     Indication: COVID-19 immunisation
     Dosage: DOSAGE TEXT: UNK
     Route: 030
  42. ASTRAZENECA COVID-19 VACCINE [Suspect]
     Active Substance: AZD-1222
     Indication: COVID-19 immunisation
     Dosage: DOSAGE TEXT: UNK, THERAPY END DATE: NOT ASKED
     Route: 065
     Dates: start: 20210312
  43. ASTRAZENECA COVID-19 VACCINE [Suspect]
     Active Substance: AZD-1222
     Indication: COVID-19 immunisation
     Dosage: DOSAGE TEXT: UNK, THERAPY END DATE: NOT ASKED
     Route: 065
     Dates: start: 20221214
  44. ASTRAZENECA COVID-19 VACCINE [Suspect]
     Active Substance: AZD-1222
     Indication: COVID-19 immunisation
     Dosage: DOSAGE TEXT: UNK
     Route: 065
  45. ASTRAZENECA COVID-19 VACCINE [Suspect]
     Active Substance: AZD-1222
     Indication: COVID-19 immunisation
     Dosage: DOSAGE TEXT: UNK
     Route: 065
     Dates: start: 20210312, end: 20210312
  46. ASTRAZENECA COVID-19 VACCINE [Suspect]
     Active Substance: AZD-1222
     Indication: COVID-19 immunisation
     Dosage: DOSAGE TEXT: UNK, THERAPY END DATE: NOT ASKED
     Route: 065
     Dates: start: 20210625
  47. ASTRAZENECA COVID-19 VACCINE [Suspect]
     Active Substance: AZD-1222
     Indication: COVID-19 immunisation
     Dosage: DOSAGE TEXT: UNK
     Route: 030
  48. ASTRAZENECA COVID-19 VACCINE [Suspect]
     Active Substance: AZD-1222
     Indication: COVID-19 immunisation
     Dosage: DOSAGE TEXT: UNK, THERAPY END DATE: NOT ASKED
     Route: 065
     Dates: start: 20210517
  49. ASTRAZENECA COVID-19 VACCINE [Suspect]
     Active Substance: AZD-1222
     Indication: COVID-19 immunisation
     Dosage: DOSAGE TEXT: UNK
     Route: 065
     Dates: start: 20211221, end: 20211221
  50. ASTRAZENECA COVID-19 VACCINE [Suspect]
     Active Substance: AZD-1222
     Indication: COVID-19 immunisation
     Dosage: DOSAGE TEXT: UNK
     Route: 065
  51. ASTRAZENECA COVID-19 VACCINE [Suspect]
     Active Substance: AZD-1222
     Indication: COVID-19 immunisation
     Dosage: DOSAGE TEXT: UNK
     Route: 065
  52. ASTRAZENECA COVID-19 VACCINE [Suspect]
     Active Substance: AZD-1222
     Indication: COVID-19 immunisation
     Dosage: DOSAGE TEXT: UNK
     Route: 065
  53. ASTRAZENECA COVID-19 VACCINE [Suspect]
     Active Substance: AZD-1222
     Indication: COVID-19 immunisation
     Dosage: DOSAGE TEXT: UNK
     Route: 065
  54. RAMIPRIL [Concomitant]
     Active Substance: RAMIPRIL
     Dosage: DOSAGE TEXT: UNK
     Route: 065
  55. RAMIPRIL [Concomitant]
     Active Substance: RAMIPRIL
     Dosage: DOSAGE TEXT: UNK, THERAPY END DATE: NOT ASKED
     Route: 065
     Dates: start: 20221205
  56. ROSUVASTATIN [Concomitant]
     Active Substance: ROSUVASTATIN
     Dosage: DOSAGE TEXT: UNK , DURATION : 703 DAYS
     Route: 065
     Dates: start: 20210317, end: 20230217
  57. SENNA [Concomitant]
     Active Substance: SENNA LEAF\SENNOSIDES\SENNOSIDES A AND B
     Dosage: DOSAGE TEXT: UNK, THERAPY END DATE: NOT ASKED
     Route: 065
     Dates: start: 20211217
  58. SILDENAFIL [Concomitant]
     Active Substance: SILDENAFIL
     Dosage: DOSAGE TEXT: UNK
     Route: 065
  59. PFIZER SILDENAFIL [Concomitant]
     Dosage: DOSAGE TEXT: UNK
     Route: 065
  60. SITAGLIPTIN [Concomitant]
     Active Substance: SITAGLIPTIN
     Dosage: DOSAGE TEXT: UNK
     Route: 065
  61. SITAGLIPTIN [Concomitant]
     Active Substance: SITAGLIPTIN
     Dosage: DOSAGE TEXT: UNK
     Route: 065
  62. SOTALOL [Concomitant]
     Active Substance: SOTALOL
     Dosage: DOSAGE TEXT: UNK
     Route: 065
  63. SPIRONOLACTONE [Concomitant]
     Active Substance: SPIRONOLACTONE
     Dosage: DOSAGE TEXT: UNK
     Route: 065
  64. SPIRONOLACTONE [Concomitant]
     Active Substance: SPIRONOLACTONE
     Dosage: DOSAGE TEXT: UNK, THERAPY END DATE: NOT ASKED
     Route: 065
     Dates: start: 20230105
  65. WARFARIN SODIUM [Concomitant]
     Active Substance: WARFARIN SODIUM
     Dosage: DOSAGE TEXT: UNK
     Route: 065
  66. ACETAMINOPHEN\CODEINE PHOSPHATE [Concomitant]
     Active Substance: ACETAMINOPHEN\CODEINE PHOSPHATE
     Dosage: DOSAGE TEXT: UNK
     Route: 065
  67. DAPAGLIFLOZIN [Suspect]
     Active Substance: DAPAGLIFLOZIN
     Indication: Ill-defined disorder
     Dosage: DOSAGE TEXT: UNK,THERAPY END DATE : NOT ASKED
     Route: 065
     Dates: start: 20220725
  68. DAPAGLIFLOZIN [Suspect]
     Active Substance: DAPAGLIFLOZIN
     Indication: Ill-defined disorder
     Dosage: DOSAGE TEXT: 10 MILLIGRAM, QD,THERAPY END DATE : NOT ASKED
     Route: 048
     Dates: start: 20230217
  69. DAPAGLIFLOZIN [Suspect]
     Active Substance: DAPAGLIFLOZIN
     Indication: Ill-defined disorder
     Dosage: DOSAGE TEXT: UNK, THERAPY END DATE : NOT ASKED
     Route: 065
     Dates: start: 20220512
  70. ZEROBASE [Concomitant]
     Dosage: DOSAGE TEXT: UNK
     Route: 065
  71. DIGOXIN [Suspect]
     Active Substance: DIGOXIN
     Indication: Cerebrovascular accident prophylaxis
     Dosage: DOSAGE TEXT: UNK
     Route: 065
  72. BISOPROLOL FUMARATE [Suspect]
     Active Substance: BISOPROLOL FUMARATE
     Indication: Cerebrovascular accident prophylaxis
     Dosage: 5 MILLIGRAM, QD, DURATION : 1 DAYS
     Route: 065
     Dates: start: 20180207, end: 20180207
  73. BISOPROLOL FUMARATE [Suspect]
     Active Substance: BISOPROLOL FUMARATE
     Indication: Cerebrovascular accident prophylaxis
     Dosage: 10 MILLIGRAM, QD
     Route: 065
  74. CANDESARTAN CILEXETIL [Suspect]
     Active Substance: CANDESARTAN CILEXETIL
     Dosage: UNK, DURATION: 350 DAYS, EVERY 1 DAYS
     Route: 065
     Dates: start: 20220401, end: 20230116
  75. CANDESARTAN CILEXETIL [Suspect]
     Active Substance: CANDESARTAN CILEXETIL
     Dosage: UNK, QD,THERAPY END DATE : NOT ASKED
     Route: 065
     Dates: start: 20230222
  76. CANDESARTAN CILEXETIL [Suspect]
     Active Substance: CANDESARTAN CILEXETIL
     Route: 065
  77. SIMVASTATIN [Suspect]
     Active Substance: SIMVASTATIN
     Dosage: UNK, THERAPY END DATE: NOT ASKED
     Route: 065
     Dates: start: 20021122
  78. SIMVASTATIN [Suspect]
     Active Substance: SIMVASTATIN
     Dosage: UNK
     Route: 065
  79. SIMVASTATIN [Suspect]
     Active Substance: SIMVASTATIN
     Dosage: 40 MILLIGRAM, QD (NIGHT)
     Route: 048
  80. CETIRIZINE HYDROCHLORIDE [Suspect]
     Active Substance: CETIRIZINE HYDROCHLORIDE
     Indication: Product used for unknown indication
     Route: 048
  81. LEVOTHYROXINE SODIUM [Suspect]
     Active Substance: LEVOTHYROXINE SODIUM
     Dosage: 125 MICROGRAM, QD (MORNING)
     Route: 065
  82. LEVOTHYROXINE SODIUM [Suspect]
     Active Substance: LEVOTHYROXINE SODIUM
     Dosage: 50 MICROGRAM, QD (MORNING)
     Route: 065
  83. LEVOTHYROXINE SODIUM [Suspect]
     Active Substance: LEVOTHYROXINE SODIUM
     Dosage: UNK
     Route: 065
  84. LEVOTHYROXINE SODIUM [Suspect]
     Active Substance: LEVOTHYROXINE SODIUM
     Dosage: UNK
     Route: 065
  85. ESOMEPRAZOLE SODIUM [Suspect]
     Active Substance: ESOMEPRAZOLE SODIUM
     Indication: Reflux laryngitis
     Dosage: 40 MILLIGRAM (AFTER MEAL)
     Route: 065
  86. FELODIPINE [Suspect]
     Active Substance: FELODIPINE
     Indication: Blood pressure abnormal
     Dosage: UNK, THERAPY END DATE: NOT ASKED
     Route: 065
     Dates: start: 20230106
  87. FELODIPINE [Suspect]
     Active Substance: FELODIPINE
     Indication: Blood pressure abnormal
     Dosage: UNK
     Route: 065
  88. ISOSORBIDE MONONITRATE [Suspect]
     Active Substance: ISOSORBIDE MONONITRATE
     Dosage: 50 MILLIGRAM, QD
     Route: 065
  89. LANSOPRAZOLE [Suspect]
     Active Substance: LANSOPRAZOLE
     Indication: Atrial fibrillation
     Dosage: 30 MILLIGRAM, QD
     Route: 065
  90. LANSOPRAZOLE [Suspect]
     Active Substance: LANSOPRAZOLE
     Indication: Atrial fibrillation
     Dosage: UNK
     Route: 065
  91. NAPROXEN [Suspect]
     Active Substance: NAPROXEN
     Dosage: UNK
     Route: 065

REACTIONS (65)
  - Tinnitus [Not Recovered/Not Resolved]
  - Diarrhoea [Recovered/Resolved]
  - Arthralgia [Recovered/Resolved]
  - Pain of skin [Recovered/Resolved]
  - Peripheral swelling [Recovered/Resolved]
  - Disturbance in attention [Recovered/Resolved]
  - Cognitive disorder [Recovered/Resolved]
  - Memory impairment [Recovering/Resolving]
  - Visual impairment [Recovering/Resolving]
  - Diplopia [Recovering/Resolving]
  - Vasculitis [Not Recovered/Not Resolved]
  - Malaise [Unknown]
  - Carotid artery occlusion [Recovered/Resolved]
  - Transient ischaemic attack [Recovered/Resolved]
  - Pruritus genital [Recovered/Resolved]
  - Sleep terror [Recovered/Resolved]
  - Fatigue [Recovered/Resolved]
  - Vomiting [Recovered/Resolved]
  - Ventricular tachycardia [Not Recovered/Not Resolved]
  - Pericarditis [Not Recovered/Not Resolved]
  - Cardiospasm [Not Recovered/Not Resolved]
  - Dyspnoea [Unknown]
  - Abdominal discomfort [Unknown]
  - Atrial tachycardia [Not Recovered/Not Resolved]
  - Anxiety [Not Recovered/Not Resolved]
  - Muscular weakness [Unknown]
  - Feeling abnormal [Unknown]
  - Insomnia [Unknown]
  - Heart rate increased [Unknown]
  - Muscle twitching [Unknown]
  - Abdominal pain upper [Unknown]
  - Dehydration [Unknown]
  - Hyperhidrosis [Unknown]
  - Headache [Not Recovered/Not Resolved]
  - Rash [Recovering/Resolving]
  - Lip swelling [Recovering/Resolving]
  - Pruritus [Recovering/Resolving]
  - Palmoplantar keratoderma [Not Recovered/Not Resolved]
  - Dry skin [Not Recovered/Not Resolved]
  - Myocardial infarction [Recovered/Resolved]
  - Chest pain [Unknown]
  - Palpitations [Unknown]
  - Tachycardia [Unknown]
  - Subarachnoid haemorrhage [Recovered/Resolved]
  - Nausea [Recovered/Resolved]
  - Pain [Recovered/Resolved]
  - Anosmia [Recovered/Resolved]
  - Eye pruritus [Recovered/Resolved]
  - Facial pain [Recovered/Resolved]
  - Back pain [Recovered/Resolved]
  - Blood glucose increased [Unknown]
  - Amnesia [Not Recovered/Not Resolved]
  - Blindness [Not Recovered/Not Resolved]
  - Immunisation [Recovered/Resolved]
  - Alopecia [Recovered/Resolved]
  - Hallucination [Recovered/Resolved]
  - Pyrexia [Unknown]
  - Tension headache [Not Recovered/Not Resolved]
  - Migraine [Not Recovered/Not Resolved]
  - Palmoplantar keratoderma [Not Recovered/Not Resolved]
  - Intentional product misuse [Unknown]
  - Off label use [Recovered/Resolved with Sequelae]
  - Angioedema [Recovered/Resolved]
  - COVID-19 [Recovered/Resolved]
  - Dizziness [Recovered/Resolved]

NARRATIVE: CASE EVENT DATE: 20210101
